FAERS Safety Report 17008062 (Version 1)
Quarter: 2019Q4

REPORT INFORMATION
  Report Type: Spontaneous
  Country: US (occurrence: US)
  Receive Date: 20191108
  Receipt Date: 20191108
  Transmission Date: 20200122
  Serious: Yes (Other)
  Sender: FDA-Public Use
  Company Number: US-ALKEM LABORATORIES LIMITED-US-ALKEM-2019-09314

PATIENT
  Sex: Female

DRUGS (6)
  1. EVEROLIMUS. [Suspect]
     Active Substance: EVEROLIMUS
     Indication: ENDOMETRIAL CANCER METASTATIC
  2. LETROZOLE. [Suspect]
     Active Substance: LETROZOLE
     Indication: ENDOMETRIAL CANCER RECURRENT
     Dosage: 2.5 MILLIGRAM, QD
     Route: 048
  3. EVEROLIMUS. [Suspect]
     Active Substance: EVEROLIMUS
     Indication: ENDOMETRIAL CANCER RECURRENT
     Dosage: 10 MILLIGRAM, QD
     Route: 048
  4. LETROZOLE. [Suspect]
     Active Substance: LETROZOLE
     Indication: ENDOMETRIAL CANCER METASTATIC
  5. METFORMIN HYDROCHLORIDE. [Suspect]
     Active Substance: METFORMIN HYDROCHLORIDE
     Indication: ENDOMETRIAL CANCER RECURRENT
     Dosage: 500 MILLIGRAM, BID
     Route: 048
  6. METFORMIN HYDROCHLORIDE. [Suspect]
     Active Substance: METFORMIN HYDROCHLORIDE
     Indication: ENDOMETRIAL CANCER METASTATIC

REACTIONS (3)
  - Liver function test abnormal [Unknown]
  - Toxicity to various agents [Unknown]
  - Therapy partial responder [Unknown]
